FAERS Safety Report 18749320 (Version 1)
Quarter: 2021Q1

REPORT INFORMATION
  Report Type: Spontaneous
  Country: JP (occurrence: JP)
  Receive Date: 20210116
  Receipt Date: 20210116
  Transmission Date: 20210419
  Serious: Yes (Other)
  Sender: FDA-Public Use
  Company Number: JP-ACCORD-213915

PATIENT
  Age: 46 Year
  Sex: Female

DRUGS (3)
  1. IRINOTECAN [Suspect]
     Active Substance: IRINOTECAN
     Indication: NEUROENDOCRINE CARCINOMA
     Dosage: DAY 1, REDUCED TO 48 MG/M2 (80% DOSE)
  2. CISPLATIN. [Suspect]
     Active Substance: CISPLATIN
     Indication: NEUROENDOCRINE CARCINOMA
     Dosage: DAY 1, 8, AND 15, REDUCED TO 48 MG/M2 (80% DOSE)
  3. SIROLIMUS. [Concomitant]
     Active Substance: SIROLIMUS
     Indication: LYMPHANGIOLEIOMYOMATOSIS

REACTIONS (3)
  - Renal failure [Unknown]
  - Angiomyolipoma [Unknown]
  - Neutropenia [Unknown]
